FAERS Safety Report 8098082-1 (Version None)
Quarter: 2012Q1

REPORT INFORMATION
  Report Type: 
  Country: None (occurrence: None)
  Receive Date: 20120128
  Receipt Date: 20110808
  Transmission Date: 20120608
  Serious: No
  Sender: FDA-Public Use
  Company Number: US-ABBOTT-11P-163-0844791-00

PATIENT
  Age: 37 Year
  Sex: Male

DRUGS (5)
  1. IBUPROFEN (ADVIL) [Concomitant]
     Indication: PRODUCT USED FOR UNKNOWN INDICATION
  2. METHADONE HCL [Concomitant]
     Indication: PRODUCT USED FOR UNKNOWN INDICATION
  3. HUMIRA [Suspect]
     Indication: ANKYLOSING SPONDYLITIS
     Dates: start: 20110802
  4. FLEXERIL [Concomitant]
     Indication: PAIN
     Dosage: AS NEEDED, Q 8 HRS
  5. PERCOCET [Concomitant]
     Indication: PAIN
     Dosage: 10/325MG AS NEEDED, Q 8 HRS

REACTIONS (1)
  - OEDEMA PERIPHERAL [None]
